FAERS Safety Report 19169368 (Version 1)
Quarter: 2021Q2

REPORT INFORMATION
  Report Type: Spontaneous
  Country: US (occurrence: US)
  Receive Date: 20210422
  Receipt Date: 20210422
  Transmission Date: 20210717
  Serious: No
  Sender: FDA-Public Use
  Company Number: US-GW PHARMA-202104USGW01749

PATIENT

DRUGS (2)
  1. EPIDIOLEX [Suspect]
     Active Substance: CANNABIDIOL
     Indication: SEIZURE
     Dosage: INITIAL DOSE UNKNOWN
     Route: 048
     Dates: start: 20210115, end: 20210405
  2. EPIDIOLEX [Suspect]
     Active Substance: CANNABIDIOL
     Dosage: 29.4 MG/KG/DAY 1000 MILLIGRAM, BID (PATIENT WAS TO TAKE 680 MG BID, 10MG/KG/DAY)
     Route: 048
     Dates: start: 20210406

REACTIONS (2)
  - Accidental overdose [Unknown]
  - Fatigue [Unknown]

NARRATIVE: CASE EVENT DATE: 20210406
